FAERS Safety Report 17451292 (Version 1)
Quarter: 2020Q1

REPORT INFORMATION
  Report Type: Spontaneous
  Country: US (occurrence: US)
  Receive Date: 20200223
  Receipt Date: 20200223
  Transmission Date: 20200409
  Serious: Yes (Disabling)
  Sender: FDA-Public Use
  Company Number: None

PATIENT
  Age: 57 Year
  Sex: Female
  Weight: 86.85 kg

DRUGS (6)
  1. BIOTIN [Concomitant]
     Active Substance: BIOTIN
  2. B12 COMPLEX [Concomitant]
  3. CELEBREX 10MG [Concomitant]
  4. DIAZEPAM PRN [Concomitant]
  5. TREMFYA [Suspect]
     Active Substance: GUSELKUMAB
     Indication: PSORIASIS
     Dosage: ?          OTHER FREQUENCY:EVERY 2 WEEKS;?
     Route: 058
     Dates: start: 20191022, end: 20191104
  6. AZATHIOPRINE 100MG [Concomitant]
     Active Substance: AZATHIOPRINE

REACTIONS (5)
  - Peripheral swelling [None]
  - Insomnia [None]
  - Arthralgia [None]
  - Musculoskeletal stiffness [None]
  - Arthritis [None]

NARRATIVE: CASE EVENT DATE: 20191104
